FAERS Safety Report 9648855 (Version 2)
Quarter: 2014Q2

REPORT INFORMATION
  Report Type: Spontaneous
  Country: US (occurrence: None)
  Receive Date: 20131018
  Receipt Date: 20140421
  Transmission Date: 20141212
  Serious: No
  Sender: FDA-Public Use
  Company Number: AEGR000140

PATIENT
  Age: 69 Year
  Sex: Female
  Weight: 102 kg

DRUGS (9)
  1. JUXTAPID [Suspect]
     Indication: TYPE IIA HYPERLIPIDAEMIA
     Dosage: 5 MG, QD, ORAL
     Route: 048
     Dates: start: 20130818
  2. LEVOTHYROXINE (LEVOTHYROXINE SODIUM) [Concomitant]
  3. MICARDIS HCT (HYDROCHLOROTHIAZIDE, TELMISARTAN) [Concomitant]
  4. GLIMEPIRIDE (GLIMEPIRIDE) [Concomitant]
  5. ASPIRIN (ACETYLSALICYLIC ACID) [Concomitant]
  6. DIAZEPAM (DIAZEPAM) [Concomitant]
  7. ESTRADIOL (ESTRADIOL) (GEL) [Concomitant]
  8. METFORMIN (METFORMIN HYDROCHLORIDE) [Concomitant]
  9. JANUVIA (SITAGLIPTIN PHOSPHATE) [Concomitant]

REACTIONS (2)
  - Vulvovaginal mycotic infection [None]
  - Vulvovaginal rash [None]
